FAERS Safety Report 4967251-9 (Version None)
Quarter: 2006Q2

REPORT INFORMATION
  Report Type: 
  Country: None (occurrence: None)
  Receive Date: 20060404
  Receipt Date: 20060322
  Transmission Date: 20061013
  Serious: Yes (Other)
  Sender: FDA-Public Use
  Company Number: 2006BH006806

PATIENT
  Sex: 0

DRUGS (1)
  1. VANCOMYCIN HCL [Suspect]
     Dosage: UNKNOWN;UNK
     Route: 065

REACTIONS (2)
  - HAEMORRHAGE [None]
  - THROMBOCYTOPENIA [None]
